FAERS Safety Report 24799278 (Version 2)
Quarter: 2025Q1

REPORT INFORMATION
  Report Type: Spontaneous
  Country: US (occurrence: US)
  Receive Date: 20250102
  Receipt Date: 20250109
  Transmission Date: 20250409
  Serious: Yes (Other)
  Sender: AUROBINDO
  Company Number: US-MLMSERVICE-20241211-PI294621-00307-1

PATIENT
  Age: 64 Year
  Sex: Female

DRUGS (3)
  1. TAMOXIFEN [Suspect]
     Active Substance: TAMOXIFEN
     Indication: Mesenteric panniculitis
     Route: 065
  2. LINACLOTIDE [Suspect]
     Active Substance: LINACLOTIDE
     Indication: Mesenteric panniculitis
     Route: 065
  3. AZATHIOPRINE [Concomitant]
     Active Substance: AZATHIOPRINE
     Indication: Product used for unknown indication
     Route: 065

REACTIONS (2)
  - Embolism venous [Unknown]
  - Drug ineffective [Unknown]
